FAERS Safety Report 5825465-X (Version None)
Quarter: 2008Q3

REPORT INFORMATION
  Report Type: 
  Country: None (occurrence: None)
  Receive Date: 20080723
  Receipt Date: 20080718
  Transmission Date: 20090109
  Serious: Yes (Hospitalization)
  Sender: FDA-Public Use
  Company Number: 2008SP014163

PATIENT
  Age: 52 Year
  Sex: Female
  Weight: 95.7 kg

DRUGS (10)
  1. TEMODAR [Suspect]
     Indication: GLIOBLASTOMA MULTIFORME
     Dosage: PO
     Route: 048
     Dates: start: 20080101, end: 20080201
  2. TEMODAR [Suspect]
     Indication: GLIOBLASTOMA MULTIFORME
     Dosage: PO
     Route: 048
     Dates: start: 20080315, end: 20080501
  3. TEMODAR [Suspect]
     Indication: GLIOBLASTOMA MULTIFORME
     Dosage: PO
     Route: 048
     Dates: start: 20080607, end: 20080627
  4. KEPPRA [Suspect]
     Indication: DRUG USE FOR UNKNOWN INDICATION
     Dosage: 500 MG;BID
  5. PROVENTIL   /00139501/ [Concomitant]
  6. FLOVENT [Concomitant]
  7. ZYRTEC	/00884302/ [Concomitant]
  8. ASPIRIN [Concomitant]
  9. CLARINEX /01202601/ [Concomitant]
  10. NAPROSYN [Concomitant]

REACTIONS (16)
  - BODY TEMPERATURE INCREASED [None]
  - CEREBRAL INFARCTION [None]
  - CONVULSION [None]
  - DRUG DOSE OMISSION [None]
  - ENCEPHALOMALACIA [None]
  - FACIAL PALSY [None]
  - FOAMING AT MOUTH [None]
  - GAZE PALSY [None]
  - HAEMOGLOBIN DECREASED [None]
  - HEMIPARESIS [None]
  - HYPOALBUMINAEMIA [None]
  - LYMPHOPENIA [None]
  - STRESS [None]
  - TONIC CLONIC MOVEMENTS [None]
  - TREMOR [None]
  - WHITE BLOOD CELL COUNT DECREASED [None]
